FAERS Safety Report 4352538-3 (Version None)
Quarter: 2004Q2

REPORT INFORMATION
  Report Type: 
  Country: None (occurrence: None)
  Receive Date: 20040503
  Receipt Date: 20040503
  Transmission Date: 20050107
  Serious: Yes (Life-Threatening)
  Sender: FDA-Public Use
  Company Number: None

PATIENT
  Sex: Female

DRUGS (2)
  1. ISOTONIX OPC-3 [Suspect]
     Indication: HYPERSENSITIVITY
     Dosage: ONE DOSE TAKEN
  2. THERMOGENICS PLUS  PHOSPHOSTERINE [Suspect]
     Indication: HYPERSENSITIVITY
     Dosage: DAILY X 1 WEEK

REACTIONS (4)
  - HEART RATE INCREASED [None]
  - RESPIRATORY RATE INCREASED [None]
  - THROAT TIGHTNESS [None]
  - URTICARIA [None]
